FAERS Safety Report 11321987 (Version 2)
Quarter: 2015Q3

REPORT INFORMATION
  Report Type: Other
  Country: US (occurrence: US)
  Receive Date: 20150729
  Receipt Date: 20150810
  Transmission Date: 20151125
  Serious: Yes (Death, Other)
  Sender: FDA-Public Use
  Company Number: US-SHIRE-US201509147

PATIENT
  Sex: Female
  Weight: 50.79 kg

DRUGS (3)
  1. FOSRENOL [Suspect]
     Active Substance: LANTHANUM CARBONATE
     Indication: BLOOD PHOSPHORUS ABNORMAL
     Dosage: 1500 MG, OTHER, 2X 750 MG TABLETS WITH EACH MEAL
     Route: 048
     Dates: start: 2009
  2. LIPITOR [Concomitant]
     Active Substance: ATORVASTATIN CALCIUM
     Indication: BLOOD CHOLESTEROL INCREASED
     Dosage: 20 MG, 1X/DAY:QD, ONCE DAILY
     Route: 048
  3. SYNTHROID [Concomitant]
     Active Substance: LEVOTHYROXINE SODIUM
     Indication: PRODUCT USED FOR UNKNOWN INDICATION
     Dosage: 150 ?G, 1X/DAY:QD, ONCE DAILY
     Route: 048

REACTIONS (4)
  - Myocardial ischaemia [Fatal]
  - Subdural haematoma [Unknown]
  - Seizure [Unknown]
  - Pulmonary embolism [Fatal]

NARRATIVE: CASE EVENT DATE: 2011
